FAERS Safety Report 23960219 (Version 1)
Quarter: 2024Q2

REPORT INFORMATION
  Report Type: Spontaneous
  Country: GB (occurrence: GB)
  Receive Date: 20240611
  Receipt Date: 20240611
  Transmission Date: 20240715
  Serious: Yes (Other)
  Sender: FDA-Public Use
  Company Number: GB-MHRA-TPP19976597C22275880YC1717438947472

PATIENT
  Age: 54 Year
  Sex: Male
  Weight: 87 kg

DRUGS (15)
  1. LANSOPRAZOLE [Suspect]
     Active Substance: LANSOPRAZOLE
     Indication: Ill-defined disorder
     Dosage: AS PER LIVER TEAM, DURATION: 159 DAYS
     Route: 065
     Dates: start: 20231228, end: 20240603
  2. SPIRONOLACTONE [Concomitant]
     Active Substance: SPIRONOLACTONE
     Indication: Ill-defined disorder
     Dosage: ONE TABLET DAILY AT 08:00, TPP YC - PLEASE RECLASSIFY
     Route: 065
     Dates: start: 20240603
  3. FEXOFENADINE [Concomitant]
     Active Substance: FEXOFENADINE HYDROCHLORIDE
     Indication: Ill-defined disorder
     Dosage: TAKE ONE DAILY, DURATION: 501 DAYS
     Route: 065
     Dates: start: 20230119, end: 20240603
  4. CODEINE PHOSPHATE [Concomitant]
     Active Substance: CODEINE PHOSPHATE
     Indication: Ill-defined disorder
     Dosage: TAKE ONE 4 TIMES/DAY
     Route: 065
     Dates: start: 20240603
  5. ENSURE PLUS FIBRE [Concomitant]
     Indication: Ill-defined disorder
     Dosage: ONE BOTTLE IN THE MORNING, BANANA, DURATION: 184 DAYS
     Route: 065
     Dates: start: 20231203, end: 20240603
  6. OXYCODONE HYDROCHLORIDE [Concomitant]
     Active Substance: OXYCODONE HYDROCHLORIDE
     Indication: Ill-defined disorder
     Dosage: 1-2 EVERY 4HOURS
     Route: 065
     Dates: start: 20240529
  7. BUTYLSCOPOLAMINE BROMIDE [Concomitant]
     Active Substance: BUTYLSCOPOLAMINE BROMIDE
     Indication: Ill-defined disorder
     Dosage: ONE TABLET EVERY 4-6 HOURS AS NEEDED, DURATION: 184 DAYS
     Route: 065
     Dates: start: 20231203, end: 20240603
  8. FUROSEMIDE [Concomitant]
     Active Substance: FUROSEMIDE
     Indication: Ill-defined disorder
     Dosage: TAKE ONE EACH MORNING AT08:00 AND ONE TABLET AT, TPP YC - PLEASE RECLASSIFY
     Route: 065
     Dates: start: 20240603
  9. ELIQUIS [Concomitant]
     Active Substance: APIXABAN
     Indication: Ill-defined disorder
     Dosage: TAKE ONE TABLET TWICE A DAY (MORNING AND EVENIN, TPP YC - PLEASE RECLASSIFY, DURATION: 211 DAYS
     Route: 065
     Dates: start: 20231106, end: 20240603
  10. MORPHINE SULFATE [Concomitant]
     Active Substance: MORPHINE SULFATE
     Indication: Ill-defined disorder
     Dosage: TIME INTERVAL: AS NECESSARY: 5ML AS REQUIRED, DURATION: 656 DAYS
     Route: 065
     Dates: start: 20220817, end: 20240603
  11. MACROGOL COMPOUND [Concomitant]
     Indication: Ill-defined disorder
     Dosage: USE AS DIRECTED
     Route: 065
     Dates: start: 20240603
  12. ENOXAPARIN [Concomitant]
     Active Substance: ENOXAPARIN
     Indication: Ill-defined disorder
     Dosage: 144MG DAILY AT 18:00
     Route: 065
     Dates: start: 20240529
  13. OTOMIZE [Concomitant]
     Indication: Ill-defined disorder
     Dosage: ONE SPRAY TO BE USED IN THE AFFECTED EAR(S) THR, TPP YC - PLEASE RECLASSIFY, DURATION: 29 DAYS
     Route: 065
     Dates: start: 20240319, end: 20240416
  14. ACETAMINOPHEN [Concomitant]
     Active Substance: ACETAMINOPHEN
     Indication: Ill-defined disorder
     Dosage: TIME INTERVAL: 0.33333333 DAYS: 2 TO BE TAKEN THREE TIMES DAILY - MAXIMUM 3 GRA...
     Route: 065
     Dates: start: 20240227
  15. CARBOHYDRATES\FATTY ACIDS\MINERALS\PROTEIN\VITAMINS [Concomitant]
     Active Substance: CARBOHYDRATES\FATTY ACIDS\MINERALS\PROTEIN\VITAMINS
     Indication: Ill-defined disorder
     Dosage: ONE FOUR TIMES A DAY
     Route: 065
     Dates: start: 20240530

REACTIONS (1)
  - Blood sodium decreased [Recovered/Resolved]

NARRATIVE: CASE EVENT DATE: 20240529
